FAERS Safety Report 21755783 (Version 2)
Quarter: 2022Q4

REPORT INFORMATION
  Report Type: Report from Study
  Country: US (occurrence: US)
  Receive Date: 20221220
  Receipt Date: 20221229
  Transmission Date: 20230113
  Serious: Yes (Hospitalization, Other)
  Sender: FDA-Public Use
  Company Number: US-GILEAD-2022-0605222

PATIENT
  Sex: Female

DRUGS (3)
  1. AMBRISENTAN [Suspect]
     Active Substance: AMBRISENTAN
     Indication: Pulmonary arterial hypertension
     Dosage: 10 MG, QD
     Route: 048
     Dates: start: 20160805
  2. AMBRISENTAN [Suspect]
     Active Substance: AMBRISENTAN
     Dosage: 10 MG, QD
     Route: 065
     Dates: start: 20160805
  3. ADCIRCA [Concomitant]
     Active Substance: TADALAFIL

REACTIONS (11)
  - Dyspnoea [Unknown]
  - Back pain [Unknown]
  - Interstitial lung disease [Unknown]
  - Wound [Unknown]
  - Echocardiogram abnormal [Unknown]
  - Anxiety [Not Recovered/Not Resolved]
  - Emotional disorder [Not Recovered/Not Resolved]
  - Diarrhoea [Unknown]
  - Product use complaint [Unknown]
  - Oxygen consumption [Unknown]
  - Gait disturbance [Unknown]
